FAERS Safety Report 10086944 (Version 1)
Quarter: 2014Q2

REPORT INFORMATION
  Report Type: Spontaneous
  Country: FR (occurrence: FR)
  Receive Date: 20140418
  Receipt Date: 20140418
  Transmission Date: 20141212
  Serious: Yes (Hospitalization)
  Sender: FDA-Public Use
  Company Number: PHHY2014FR047430

PATIENT
  Age: 83 Year
  Sex: Female

DRUGS (20)
  1. EXELON [Suspect]
     Indication: DEMENTIA ALZHEIMER^S TYPE
     Dosage: 9.5 MG, QD (9.5MG/24HS)
     Route: 062
     Dates: end: 20140220
  2. TRAMADOL [Suspect]
     Dosage: 50 MG, QD
     Dates: start: 20140217
  3. CEFAZOLINE [Suspect]
     Dosage: 2 G, QD
     Route: 042
     Dates: start: 20140217
  4. LIDOCAINE [Suspect]
     Dosage: 50 MG, QD
     Dates: start: 20140217
  5. PROPOFOL [Suspect]
     Dosage: 70 MG, QD
     Route: 042
     Dates: start: 20140217
  6. SUFENTANIL [Suspect]
     Dosage: 20 UG, QD
     Dates: start: 20140217
  7. ATRACURIUM [Suspect]
     Dosage: 20 MG, QD
     Dates: start: 20140217
  8. EPHEDRINE HYDROCHLORIDE [Suspect]
     Dosage: 30 MG, QD
     Dates: start: 20140217
  9. NEFOPAM HYDROCHLORIDE [Suspect]
     Dosage: 20 MG, QD
     Dates: start: 20140217
  10. PERFALGAN [Suspect]
     Dosage: 1 G, QID
     Route: 042
     Dates: start: 20140217, end: 20140218
  11. PHENYLEPHRINE [Suspect]
     Dosage: 350 UG, QD
     Dates: start: 20140217
  12. PERINDOPRIL [Suspect]
     Dosage: 4 MG, QD
     Route: 048
     Dates: end: 20140218
  13. DEROXAT [Suspect]
     Dosage: 0.5 DF, DAILY
     Route: 048
  14. DAFALGAN [Suspect]
     Dosage: 1G/6 HOURS THEN 1G/8 HOURS
     Route: 048
     Dates: start: 20140218, end: 20140220
  15. MOVICOL [Concomitant]
     Dosage: 1 DF, DAILY
     Route: 048
     Dates: start: 20140217
  16. EUPANTOL [Concomitant]
     Dosage: UNK UKN, QD
     Route: 048
  17. PLAVIX [Concomitant]
     Dosage: UNK UKN, QD
     Route: 048
     Dates: start: 2012
  18. CALCIPARINE [Concomitant]
     Dosage: UNK UKN, UNK
     Route: 058
     Dates: start: 20140217
  19. CELECTOL [Concomitant]
     Dosage: UNK UKN, QD
     Route: 048
     Dates: start: 2012
  20. ACTISKENAN [Concomitant]
     Dosage: 1 DF, Q8H
     Route: 048
     Dates: start: 20140217

REACTIONS (1)
  - Hepatocellular injury [Recovered/Resolved]
